FAERS Safety Report 16921422 (Version 4)
Quarter: 2025Q3

REPORT INFORMATION
  Report Type: Spontaneous
  Country: US (occurrence: US)
  Receive Date: 20191015
  Receipt Date: 20250916
  Transmission Date: 20251021
  Serious: Yes (Death, Life-Threatening, Other)
  Sender: PFIZER
  Company Number: US-MLMSERVICE-20191004-1987120-1

PATIENT
  Age: 59 Year
  Sex: Male

DRUGS (7)
  1. DOCETAXEL [Suspect]
     Active Substance: DOCETAXEL
     Indication: Adenocarcinoma
  2. EPIRUBICIN HYDROCHLORIDE [Suspect]
     Active Substance: EPIRUBICIN HYDROCHLORIDE
     Indication: Adenocarcinoma
  3. IRINOTECAN HYDROCHLORIDE [Suspect]
     Active Substance: IRINOTECAN HYDROCHLORIDE
     Indication: Adenocarcinoma
  4. CISPLATIN [Suspect]
     Active Substance: CISPLATIN
     Indication: Adenocarcinoma
  5. BEVACIZUMAB [Suspect]
     Active Substance: BEVACIZUMAB
     Indication: Adenocarcinoma
  6. CAPECITABINE [Suspect]
     Active Substance: CAPECITABINE
     Indication: Adenocarcinoma
  7. DEXAMETHASONE [Suspect]
     Active Substance: DEXAMETHASONE
     Indication: Adenocarcinoma

REACTIONS (10)
  - Haemoptysis [Fatal]
  - Cardio-respiratory arrest [Fatal]
  - Thrombosis [Unknown]
  - Hypoxia [Unknown]
  - Idiosyncratic drug reaction [Unknown]
  - Hypersensitivity [Unknown]
  - Vascular pseudoaneurysm [Unknown]
  - Hypotension [Unknown]
  - Mucosal inflammation [Unknown]
  - Ulcer [Recovered/Resolved]
